FAERS Safety Report 23838166 (Version 1)
Quarter: 2024Q2

REPORT INFORMATION
  Report Type: Spontaneous
  Country: US (occurrence: None)
  Receive Date: 20240508
  Receipt Date: 20240508
  Transmission Date: 20240715
  Serious: Yes (Hospitalization)
  Sender: FDA-Public Use
  Company Number: None

PATIENT
  Age: 16 Month
  Sex: Female

DRUGS (1)
  1. TRACLEER [Suspect]
     Active Substance: BOSENTAN
     Indication: Pulmonary arterial hypertension
     Dosage: 3.9ML TWICE A DAY GJTUBE?
     Route: 050
     Dates: start: 202402

REACTIONS (2)
  - Fluid retention [None]
  - Oxygen saturation decreased [None]

NARRATIVE: CASE EVENT DATE: 20240506
